FAERS Safety Report 8209879-9 (Version None)
Quarter: 2012Q1

REPORT INFORMATION
  Report Type: 
  Country: None (occurrence: None)
  Receive Date: 20120314
  Receipt Date: 20120213
  Transmission Date: 20120608
  Serious: Yes (Death, Other)
  Sender: FDA-Public Use
  Company Number: US-ROCHE-1015651

PATIENT
  Sex: Male
  Weight: 83 kg

DRUGS (16)
  1. MYCOPHENOLATE MOFETIL (CELLCEPT) [Suspect]
     Route: 048
  2. HYDROCHLOROTHIAZIDE [Concomitant]
     Route: 048
  3. VALSARTAN [Concomitant]
     Route: 048
  4. PREDNISONE TAB [Concomitant]
     Route: 048
  5. PHENYTOIN [Concomitant]
     Route: 048
  6. CALCIUM D3 [Concomitant]
  7. PROGRAF [Concomitant]
     Route: 048
  8. ACETAMINOPHEN [Concomitant]
     Indication: ARTHRALGIA
     Route: 048
  9. HYDROCODONE BITARTRATE AND ACETAMINOPHEN [Concomitant]
     Dosage: 5-5001
     Route: 048
  10. BACTRIM [Concomitant]
     Dosage: 80-400 MG
     Route: 048
  11. VALCYTE [Suspect]
     Indication: PRODUCT USED FOR UNKNOWN INDICATION
     Route: 048
  12. METOPROLOL SUCCINATE [Concomitant]
     Route: 048
  13. MYCOPHENOLATE MOFETIL (CELLCEPT) [Suspect]
     Indication: PRODUCT USED FOR UNKNOWN INDICATION
  14. MAGNESIUM [Concomitant]
     Route: 048
  15. CYCLOSPORINE [Concomitant]
     Route: 055
  16. PRILOSEC [Concomitant]
     Route: 048

REACTIONS (3)
  - DIARRHOEA INFECTIOUS [None]
  - BRAIN HERNIATION [None]
  - CYTOMEGALOVIRUS INFECTION [None]
